FAERS Safety Report 4471877-9 (Version None)
Quarter: 2004Q4

REPORT INFORMATION
  Report Type: 
  Country: None (occurrence: None)
  Receive Date: 20041007
  Receipt Date: 20040929
  Transmission Date: 20050328
  Serious: Yes (Death)
  Sender: FDA-Public Use
  Company Number: GB-2004-032745

PATIENT
  Sex: Female

DRUGS (1)
  1. CAMPATH [Suspect]
     Dosage: T-CELL PROLYMPHOCYTIC LEUKAEMIA

REACTIONS (1)
  - OEDEMA [None]
